FAERS Safety Report 10580964 (Version 1)
Quarter: 2014Q4

REPORT INFORMATION
  Report Type: Report from Study
  Country: IT (occurrence: IT)
  Receive Date: 20141113
  Receipt Date: 20141113
  Transmission Date: 20150529
  Serious: Yes (Other)
  Sender: FDA-Public Use
  Company Number: PHHO2014IT014721

PATIENT
  Age: 66 Year
  Sex: Male
  Weight: 93 kg

DRUGS (5)
  1. CLORTALIDONE [Concomitant]
     Dosage: 25 MG, QD
     Route: 065
  2. FTY [Suspect]
     Active Substance: FINGOLIMOD HYDROCHLORIDE
     Dosage: 0.5 MG, QD
     Route: 048
     Dates: start: 20140904, end: 20141030
  3. RAMIPRIL. [Concomitant]
     Active Substance: RAMIPRIL
     Dosage: 10 MG, BID
     Route: 065
  4. 4-AMINOPYRIDINE [Concomitant]
     Active Substance: DALFAMPRIDINE
     Dosage: 20 MG, QD
     Route: 065
  5. OXIBUTININA//OXYBUTYNIN [Concomitant]
     Dosage: 5 MG, QD
     Route: 065

REACTIONS (1)
  - Arterial spasm [Not Recovered/Not Resolved]

NARRATIVE: CASE EVENT DATE: 20141007
